FAERS Safety Report 9181592 (Version 1)
Quarter: 2013Q1

REPORT INFORMATION
  Report Type: Spontaneous
  Country: US (occurrence: None)
  Receive Date: 20120621
  Receipt Date: 20120621
  Transmission Date: 20140127
  Serious: Yes (Hospitalization)
  Sender: FDA-Public Use
  Company Number: 032572

PATIENT
  Sex: Male
  Weight: 108.86 kg

DRUGS (3)
  1. CIMZIA [Suspect]
     Indication: CROHN^S DISEASE
     Dosage: 1X/MONTH, S.C.
     Dates: start: 20100410
  2. LOMOTIL/00034001 [Concomitant]
  3. SULFASALAZINE [Concomitant]

REACTIONS (7)
  - Diarrhoea [None]
  - Weight decreased [None]
  - Renal cyst [None]
  - Decreased appetite [None]
  - Abdominal pain [None]
  - Malaise [None]
  - Fatigue [None]
